FAERS Safety Report 11389497 (Version 1)
Quarter: 2015Q3

REPORT INFORMATION
  Report Type: Spontaneous
  Country: US (occurrence: US)
  Receive Date: 20150817
  Receipt Date: 20150817
  Transmission Date: 20151125
  Serious: Yes (Hospitalization, Other)
  Sender: FDA-Public Use
  Company Number: US-GLAXOSMITHKLINE-US2015116740

PATIENT
  Age: 79 Year
  Sex: Female

DRUGS (2)
  1. RYTHMOL SR [Suspect]
     Active Substance: PROPAFENONE HYDROCHLORIDE
     Indication: ATRIAL FIBRILLATION
     Dosage: 425 MG, BID
     Route: 048
  2. CARDIA [Concomitant]
     Active Substance: AJMALINE

REACTIONS (4)
  - Diverticulitis [Recovering/Resolving]
  - Urinary tract infection [Recovering/Resolving]
  - Atrial fibrillation [Recovered/Resolved]
  - Drug dose omission [Unknown]

NARRATIVE: CASE EVENT DATE: 201507
